FAERS Safety Report 5012750-7 (Version None)
Quarter: 2006Q2

REPORT INFORMATION
  Report Type: 
  Country: None (occurrence: None)
  Receive Date: 20060530
  Receipt Date: 20060120
  Transmission Date: 20061013
  Serious: Yes (Life-Threatening)
  Sender: FDA-Public Use
  Company Number: US-BRISTOL-MYERS SQUIBB COMPANY-13255492

PATIENT
  Age: 44 Year
  Sex: Male

DRUGS (3)
  1. ERBITUX [Suspect]
     Indication: COLORECTAL CANCER
     Route: 042
     Dates: start: 20060120, end: 20060120
  2. BENADRYL [Concomitant]
     Indication: PREMEDICATION
     Route: 042
     Dates: start: 20060120, end: 20060120
  3. DECADRON SRC [Concomitant]
     Indication: PREMEDICATION
     Dates: start: 20060120, end: 20060120

REACTIONS (1)
  - INFUSION RELATED REACTION [None]
